FAERS Safety Report 8172207-1 (Version None)
Quarter: 2012Q1

REPORT INFORMATION
  Report Type: 
  Country: None (occurrence: None)
  Receive Date: 20120228
  Receipt Date: 20110224
  Transmission Date: 20120608
  Serious: Yes (Other)
  Sender: FDA-Public Use
  Company Number: PHHY2011JP115630

PATIENT
  Age: 47 Year
  Sex: Male

DRUGS (2)
  1. HORMONES [Concomitant]
     Indication: PROSTATE CANCER
  2. ZOMETA [Suspect]
     Indication: METASTASES TO BONE
     Dosage: UNK

REACTIONS (3)
  - METASTASES TO BONE [None]
  - SPINAL COLUMN STENOSIS [None]
  - RADICULOPATHY [None]
